FAERS Safety Report 15008616 (Version 4)
Quarter: 2018Q4

REPORT INFORMATION
  Report Type: Spontaneous
  Country: US (occurrence: US)
  Receive Date: 20180613
  Receipt Date: 20181217
  Transmission Date: 20190204
  Serious: Yes (Hospitalization, Disabling, Other)
  Sender: FDA-Public Use
  Company Number: US-OTSUKA-2018_015325

PATIENT
  Age: 27 Year
  Sex: Male

DRUGS (5)
  1. ABILIFY [Suspect]
     Active Substance: ARIPIPRAZOLE
     Indication: MAJOR DEPRESSION
     Dosage: 15 MG, QD
     Route: 065
  2. ABILIFY [Suspect]
     Active Substance: ARIPIPRAZOLE
     Indication: BIPOLAR DISORDER
     Dosage: 10 MG, QD
     Route: 065
  3. ABILIFY [Suspect]
     Active Substance: ARIPIPRAZOLE
     Indication: ANXIETY
  4. ABILIFY [Suspect]
     Active Substance: ARIPIPRAZOLE
     Indication: AGITATION
     Dosage: 20 MG, QD
     Route: 065
     Dates: end: 201201
  5. ABILIFY [Suspect]
     Active Substance: ARIPIPRAZOLE
     Indication: IRRITABILITY

REACTIONS (22)
  - Loss of employment [Unknown]
  - Social problem [Unknown]
  - Affective disorder [Unknown]
  - Emotional distress [Unknown]
  - Suicide attempt [Not Recovered/Not Resolved]
  - Attention deficit/hyperactivity disorder [Unknown]
  - Economic problem [Unknown]
  - Physical disability [Unknown]
  - Suicidal ideation [Not Recovered/Not Resolved]
  - Substance dependence [Unknown]
  - Mental impairment [Unknown]
  - Shoplifting [Unknown]
  - Condition aggravated [Unknown]
  - Product use in unapproved indication [Unknown]
  - Anhedonia [Unknown]
  - Injury [Unknown]
  - Obsessive-compulsive disorder [Not Recovered/Not Resolved]
  - Gambling disorder [Recovered/Resolved]
  - Disability [Unknown]
  - Mental disorder [Unknown]
  - Compulsive shopping [Not Recovered/Not Resolved]
  - Theft [Unknown]

NARRATIVE: CASE EVENT DATE: 2008
